FAERS Safety Report 6921657-7 (Version None)
Quarter: 2010Q3

REPORT INFORMATION
  Report Type: 
  Country: None (occurrence: None)
  Receive Date: 20100812
  Receipt Date: 20100803
  Transmission Date: 20110219
  Serious: Yes (Hospitalization)
  Sender: FDA-Public Use
  Company Number: DK-JNJFOC-20100607927

PATIENT
  Sex: Female
  Weight: 63 kg

DRUGS (8)
  1. REMICADE [Suspect]
     Indication: COLITIS ULCERATIVE
     Route: 042
  2. REMICADE [Suspect]
     Route: 042
  3. REMICADE [Suspect]
     Route: 042
  4. AZATHIOPRINE [Concomitant]
     Indication: COLITIS ULCERATIVE
     Route: 048
  5. ASACOL [Concomitant]
     Indication: COLITIS ULCERATIVE
  6. SOLU-MEDROL [Concomitant]
     Indication: PREMEDICATION
     Route: 042
  7. PREDNISOLONE [Concomitant]
     Indication: PREMEDICATION
  8. FERINJECT [Concomitant]

REACTIONS (2)
  - COLITIS ULCERATIVE [None]
  - PSEUDOPOLYP [None]
